FAERS Safety Report 7220283-2 (Version None)
Quarter: 2011Q1

REPORT INFORMATION
  Report Type: 
  Country: None (occurrence: None)
  Receive Date: 20110111
  Receipt Date: 20101229
  Transmission Date: 20110831
  Serious: Yes (Life-Threatening, Hospitalization, Other)
  Sender: FDA-Public Use
  Company Number: US-ACTELION-A-NJ2010-42989

PATIENT

DRUGS (4)
  1. ILOPROST INHALATION SOLUTION UNKNOWN US [Suspect]
     Indication: PULMONARY ARTERIAL HYPERTENSION
     Dosage: 2.5 MG, BID
     Route: 055
     Dates: start: 20101115
  2. REVATIO [Concomitant]
  3. TRACLEER [Concomitant]
     Indication: PULMONARY ARTERIAL HYPERTENSION
     Dosage: UNK
     Route: 048
     Dates: start: 20081003
  4. ASPIRIN [Concomitant]

REACTIONS (4)
  - COLONOSCOPY [None]
  - TRANSFUSION [None]
  - GASTROINTESTINAL HAEMORRHAGE [None]
  - POLYPECTOMY [None]
